FAERS Safety Report 4435740-1 (Version None)
Quarter: 2004Q3

REPORT INFORMATION
  Report Type: 
  Country: None (occurrence: None)
  Receive Date: 20040826
  Receipt Date: 20040814
  Transmission Date: 20050211
  Serious: Yes (Death)
  Sender: FDA-Public Use
  Company Number: 208445

PATIENT
  Age: 62 Year
  Sex: Male
  Weight: 88.9 kg

DRUGS (9)
  1. AVASTIN [Suspect]
     Indication: COLORECTAL CANCER METASTATIC
     Dosage: 420 MG, Q2W, INTRAVENOUS
     Route: 042
     Dates: start: 20040526, end: 20040623
  2. FLUOROURACIL [Concomitant]
  3. LEUCOVORIN CALCIUM [Concomitant]
  4. OXALIPLATIN (OXALIPLATIN) [Concomitant]
  5. KYTRIL [Concomitant]
  6. DECADORN (DEXAMETHASONE) [Concomitant]
  7. BENADRYL [Concomitant]
  8. METHADONE HCL [Concomitant]
  9. MULTIVITAMIN (MULTIVITAMINS NOS) [Concomitant]

REACTIONS (28)
  - ANION GAP INCREASED [None]
  - AREFLEXIA [None]
  - ARRHYTHMIA [None]
  - ASPARTATE AMINOTRANSFERASE INCREASED [None]
  - BLOOD ALBUMIN DECREASED [None]
  - BLOOD ALKALINE PHOSPHATASE INCREASED [None]
  - BLOOD GLUCOSE INCREASED [None]
  - BLOOD POTASSIUM DECREASED [None]
  - BLOOD PRESSURE INCREASED [None]
  - BODY TEMPERATURE INCREASED [None]
  - CARDIO-RESPIRATORY ARREST [None]
  - COMA [None]
  - EXTRASYSTOLES [None]
  - FALL [None]
  - HEART RATE INCREASED [None]
  - HYPOTENSION [None]
  - OXYGEN SATURATION DECREASED [None]
  - PULSE ABSENT [None]
  - RESPIRATORY DISORDER [None]
  - RESPIRATORY DISTRESS [None]
  - RESPIRATORY FAILURE [None]
  - RESPIRATORY RATE INCREASED [None]
  - SEPSIS [None]
  - TORSADE DE POINTES [None]
  - TROPONIN INCREASED [None]
  - URINARY INCONTINENCE [None]
  - VENTRICULAR TACHYCARDIA [None]
  - VOMITING [None]
